FAERS Safety Report 24292168 (Version 1)
Quarter: 2024Q3

REPORT INFORMATION
  Report Type: Spontaneous
  Country: US (occurrence: None)
  Receive Date: 20240906
  Receipt Date: 20240906
  Transmission Date: 20241017
  Serious: No
  Sender: DOMPE FARMACEUTICI
  Company Number: US-FARMAPROD-202307-2109

PATIENT
  Sex: Female

DRUGS (11)
  1. OXERVATE [Suspect]
     Active Substance: CENEGERMIN-BKBJ
     Indication: Neurotrophic keratopathy
     Route: 047
     Dates: start: 20230530
  2. GABAPENTIN [Concomitant]
     Active Substance: GABAPENTIN
  3. DORZOLAMIDE HYDROCHLORIDE [Concomitant]
     Active Substance: DORZOLAMIDE HYDROCHLORIDE
  4. XYZAL [Concomitant]
     Active Substance: LEVOCETIRIZINE DIHYDROCHLORIDE
  5. TREXALL [Concomitant]
     Active Substance: METHOTREXATE SODIUM
  6. TIMOPTIC [Concomitant]
     Active Substance: TIMOLOL MALEATE
  7. FAMCICLOVIR [Concomitant]
     Active Substance: FAMCICLOVIR
  8. PREDNISONE [Concomitant]
     Active Substance: PREDNISONE
  9. CELEBREX [Concomitant]
     Active Substance: CELECOXIB
  10. CEFADROXIL [Concomitant]
     Active Substance: CEFADROXIL
  11. ASPIRIN [Concomitant]
     Active Substance: ASPIRIN

REACTIONS (3)
  - Eye pain [Unknown]
  - Photophobia [Unknown]
  - Vision blurred [Unknown]
